FAERS Safety Report 20834025 (Version 1)
Quarter: 2022Q2

REPORT INFORMATION
  Report Type: Spontaneous
  Country: US (occurrence: None)
  Receive Date: 20220513
  Receipt Date: 20220513
  Transmission Date: 20220720
  Serious: Yes (Death)
  Sender: FDA-Public Use
  Company Number: None

PATIENT
  Age: 44 Year
  Sex: Male

DRUGS (1)
  1. HUMIRA [Suspect]
     Active Substance: ADALIMUMAB
     Indication: Colitis ulcerative
     Dosage: 40MG OTHER  SUBCUTANEOUS
     Route: 058
     Dates: start: 20200312, end: 20220405

REACTIONS (1)
  - Death [None]

NARRATIVE: CASE EVENT DATE: 20220418
